FAERS Safety Report 16276470 (Version 1)
Quarter: 2019Q2

REPORT INFORMATION
  Report Type: Spontaneous
  Country: US (occurrence: US)
  Receive Date: 20190401
  Receipt Date: 20190401
  Transmission Date: 20190711
  Serious: Yes (Other)
  Sender: FDA-Public Use
  Company Number: None

PATIENT
  Age: 79 Year
  Sex: Female
  Weight: 58.97 kg

DRUGS (11)
  1. LEVOTHYROXINE. [Suspect]
     Active Substance: LEVOTHYROXINE
     Indication: HYPOTHYROIDISM
     Dosage: 100 MG 1 PILL DAILY BY MOUTH ON EMPTY STOMACH
     Route: 048
  2. ATENOLOL. [Concomitant]
     Active Substance: ATENOLOL
  3. ATROVENT [Concomitant]
     Active Substance: IPRATROPIUM BROMIDE
  4. CLARITIN [Concomitant]
     Active Substance: LORATADINE
  5. CENTRUM (VITAMIN) [Concomitant]
  6. LEVOTHYROXINE. [Concomitant]
     Active Substance: LEVOTHYROXINE
  7. BIOTIN [Concomitant]
     Active Substance: BIOTIN
  8. GLUCOSAMINE [Concomitant]
     Active Substance: GLUCOSAMINE
  9. CALCIUM [Concomitant]
     Active Substance: CALCIUM
  10. VITAMIN C [Concomitant]
     Active Substance: ASCORBIC ACID
  11. NASACORT [Concomitant]
     Active Substance: TRIAMCINOLONE ACETONIDE

REACTIONS (1)
  - Alopecia [None]
